FAERS Safety Report 22368622 (Version 1)
Quarter: 2023Q2

REPORT INFORMATION
  Report Type: Report from Study
  Country: US (occurrence: US)
  Receive Date: 20230525
  Receipt Date: 20230525
  Transmission Date: 20230721
  Serious: Yes (Other)
  Sender: FDA-Public Use
  Company Number: US-002147023-NVSC2023US115287

PATIENT
  Sex: Male
  Weight: 128.8 kg

DRUGS (5)
  1. COSENTYX [Suspect]
     Active Substance: SECUKINUMAB
     Indication: Product used for unknown indication
     Dosage: UNK
     Route: 065
  2. BETAMETHASONE [Suspect]
     Active Substance: BETAMETHASONE
     Indication: Psoriasis
     Dosage: UNK
     Route: 065
  3. CLOBETASOL [Suspect]
     Active Substance: CLOBETASOL
     Indication: Psoriasis
     Dosage: UNK
     Route: 065
  4. KETOCONAZOLE [Suspect]
     Active Substance: KETOCONAZOLE
     Indication: Psoriasis
     Dosage: UNK
     Route: 065
  5. CLODERM [Suspect]
     Active Substance: CLOCORTOLONE PIVALATE
     Indication: Psoriasis
     Dosage: 0.1 %
     Route: 061

REACTIONS (13)
  - Psoriatic arthropathy [Unknown]
  - Arthralgia [Unknown]
  - Joint stiffness [Unknown]
  - Dermal cyst [Unknown]
  - Psoriasis [Unknown]
  - Pruritus [Not Recovered/Not Resolved]
  - Skin irritation [Unknown]
  - Erythema [Unknown]
  - Papule [Unknown]
  - Skin plaque [Unknown]
  - Skin exfoliation [Unknown]
  - Product use in unapproved indication [Unknown]
  - Treatment failure [Unknown]
